FAERS Safety Report 4474233-2 (Version None)
Quarter: 2004Q4

REPORT INFORMATION
  Report Type: 
  Country: None (occurrence: None)
  Receive Date: 20041012
  Receipt Date: 20041005
  Transmission Date: 20050328
  Serious: Yes (Death)
  Sender: FDA-Public Use
  Company Number: 2004-120924-NL

PATIENT
  Age: 72 Year
  Sex: Female

DRUGS (3)
  1. MIRTAZAPINE [Suspect]
  2. CHLORPROMAZINE [Suspect]
  3. MIRTAZEPAM [Suspect]

REACTIONS (1)
  - DEATH [None]
